FAERS Safety Report 6182827-1 (Version None)
Quarter: 2009Q2

REPORT INFORMATION
  Report Type: 
  Country: None (occurrence: None)
  Receive Date: 20090507
  Receipt Date: 20080915
  Transmission Date: 20091009
  Serious: Yes (Death, Life-Threatening, Hospitalization, Other)
  Sender: FDA-Public Use
  Company Number: US-AVENTIS-200815377US

PATIENT
  Sex: Male

DRUGS (5)
  1. GLYBURIDE [Suspect]
     Dosage: DOSE: UNK
     Dates: start: 20020104
  2. METFORMIN HCL [Suspect]
     Dosage: DOSE: UNK
     Dates: start: 20020104, end: 20020926
  3. COZAAR [Concomitant]
     Dosage: DOSE: UNK
     Dates: start: 20020926
  4. ATENOLOL [Concomitant]
     Dosage: DOSE: UNK
     Dates: start: 20020926
  5. LIPITOR [Concomitant]
     Dosage: DOSE: UNK
     Dates: start: 20020424

REACTIONS (8)
  - ABDOMINAL PAIN [None]
  - BLOOD PRESSURE INCREASED [None]
  - CEREBROVASCULAR ACCIDENT [None]
  - DISEASE PROGRESSION [None]
  - HEPATIC FUNCTION ABNORMAL [None]
  - HEPATIC NEOPLASM [None]
  - PANCREATIC CARCINOMA [None]
  - WEIGHT DECREASED [None]
